FAERS Safety Report 14044360 (Version 2)
Quarter: 2017Q4

REPORT INFORMATION
  Report Type: Spontaneous
  Country: US (occurrence: US)
  Receive Date: 20171004
  Receipt Date: 20171103
  Transmission Date: 20180321
  Serious: Yes (Hospitalization, Other)
  Sender: FDA-Public Use
  Company Number: US-BEH-2017084009

PATIENT
  Age: 59 Year
  Sex: Female
  Weight: 113.83 kg

DRUGS (16)
  1. PROPRANOLOL [Concomitant]
     Active Substance: PROPRANOLOL HYDROCHLORIDE
  2. NEXIUM [Concomitant]
     Active Substance: ESOMEPRAZOLE MAGNESIUM
  3. HIZENTRA [Suspect]
     Active Substance: HUMAN IMMUNOGLOBULIN G
     Indication: IMMUNODEFICIENCY COMMON VARIABLE
     Dosage: 20 G, QW
     Route: 058
     Dates: start: 20120925
  4. EPIPEN [Concomitant]
     Active Substance: EPINEPHRINE
  5. ALEVE [Concomitant]
     Active Substance: NAPROXEN SODIUM
  6. ZESTRIL [Concomitant]
     Active Substance: LISINOPRIL
  7. MIGRANAL [Concomitant]
     Active Substance: DIHYDROERGOTAMINE MESYLATE
  8. TOPAMAX [Concomitant]
     Active Substance: TOPIRAMATE
  9. TYLENOL [Concomitant]
     Active Substance: ACETAMINOPHEN
  10. HIZENTRA [Suspect]
     Active Substance: HUMAN IMMUNOGLOBULIN G
     Dosage: UNK
     Route: 058
  11. EFFEXOR [Concomitant]
     Active Substance: VENLAFAXINE HYDROCHLORIDE
  12. PRAVASTATIN. [Concomitant]
     Active Substance: PRAVASTATIN
  13. MULTIVITAMINS [Concomitant]
     Active Substance: VITAMINS
  14. FIORICET [Concomitant]
     Active Substance: ACETAMINOPHEN\BUTALBITAL\CAFFEINE
  15. TOPAMAX [Concomitant]
     Active Substance: TOPIRAMATE
  16. BENADRYL [Concomitant]
     Active Substance: DIPHENHYDRAMINE HYDROCHLORIDE

REACTIONS (4)
  - Nephrectomy [Unknown]
  - Post procedural infection [Unknown]
  - Staphylococcal infection [Unknown]
  - Renal artery stent placement [Unknown]

NARRATIVE: CASE EVENT DATE: 20170703
